FAERS Safety Report 17089794 (Version 1)
Quarter: 2019Q4

REPORT INFORMATION
  Report Type: Spontaneous
  Country: US (occurrence: US)
  Receive Date: 20191128
  Receipt Date: 20191128
  Transmission Date: 20200122
  Serious: No
  Sender: FDA-Public Use
  Company Number: US-SHIRE-US201940882

PATIENT

DRUGS (1)
  1. ELAPRASE [Suspect]
     Active Substance: IDURSULFASE
     Indication: MUCOPOLYSACCHARIDOSIS II
     Dosage: UNK VIAL, 1X/WEEK
     Route: 042
     Dates: start: 20070126

REACTIONS (3)
  - Joint stiffness [Unknown]
  - Product dose omission [Unknown]
  - Petechiae [Recovered/Resolved]
